FAERS Safety Report 21785408 (Version 1)
Quarter: 2022Q4

REPORT INFORMATION
  Report Type: Spontaneous
  Country: VN (occurrence: VN)
  Receive Date: 20221227
  Receipt Date: 20221227
  Transmission Date: 20230112
  Serious: Yes (Death)
  Sender: FDA-Public Use
  Company Number: VN-002147023-NVSC2022VN294215

PATIENT

DRUGS (1)
  1. RUXOLITINIB [Suspect]
     Active Substance: RUXOLITINIB
     Indication: Graft versus host disease
     Dosage: UNK (5-10 MG, TWICE A DAY)
     Route: 065

REACTIONS (2)
  - Graft versus host disease in lung [Fatal]
  - Off label use [Unknown]
